FAERS Safety Report 8768600 (Version 5)
Quarter: 2014Q1

REPORT INFORMATION
  Report Type: Spontaneous
  Country: US (occurrence: US)
  Receive Date: 20120904
  Receipt Date: 20140128
  Transmission Date: 20141002
  Serious: Yes (Hospitalization, Disabling, Other)
  Sender: FDA-Public Use
  Company Number: US-009507513-1208USA012393

PATIENT
  Sex: Female
  Weight: 63.49 kg

DRUGS (12)
  1. FOSAMAX [Suspect]
     Indication: OSTEOPOROSIS
     Dosage: 70 MG, QW
     Route: 048
     Dates: start: 200108
  2. FOSAMAX [Suspect]
     Indication: OSTEOPENIA
  3. ALENDRONATE SODIUM [Suspect]
     Indication: OSTEOPENIA
     Dosage: 70 MG, QW
     Route: 048
     Dates: start: 200802, end: 200905
  4. VITAMINS (UNSPECIFIED) [Concomitant]
     Dosage: QD
     Dates: start: 1970
  5. CALCIUM (UNSPECIFIED) [Concomitant]
     Dosage: 1500 MG, QD
     Dates: start: 1970
  6. VITAMIN D (UNSPECIFIED) [Concomitant]
     Dosage: 800IU-1000IU, QD
     Dates: start: 1970
  7. CORTICOSTEROIDS (UNSPECIFIED) [Concomitant]
     Indication: RHINITIS ALLERGIC
     Route: 045
  8. MIACALCIN [Concomitant]
     Indication: OSTEOPOROSIS
     Dosage: UNK, QD
     Route: 045
  9. METOPROLOL TARTRATE [Concomitant]
     Indication: HYPERTENSION
     Dosage: 50 MG, BID
     Route: 048
  10. VERAPAMIL [Concomitant]
     Indication: HYPERTENSION
     Dosage: 120 MG QD-BID
     Route: 048
  11. PRAVASTATIN SODIUM [Concomitant]
     Indication: HYPERCHOLESTEROLAEMIA
     Dosage: 20 MG, QD
     Route: 048
  12. CALCIUM (UNSPECIFIED) (+) VITAMIN D (UNSPECIFIED) [Concomitant]
     Indication: OSTEOPOROSIS
     Dosage: 500MG/500MG TID
     Route: 048

REACTIONS (23)
  - Intramedullary rod insertion [Unknown]
  - Intramedullary rod insertion [Unknown]
  - Femur fracture [Not Recovered/Not Resolved]
  - Femur fracture [Not Recovered/Not Resolved]
  - Osteoporosis [Not Recovered/Not Resolved]
  - Atypical femur fracture [Recovering/Resolving]
  - Atypical femur fracture [Unknown]
  - Fall [Unknown]
  - Cataract operation [Unknown]
  - Head injury [Unknown]
  - Vitamin D deficiency [Unknown]
  - Spinal osteoarthritis [Unknown]
  - Sleep apnoea syndrome [Unknown]
  - Anaemia [Unknown]
  - Hypercalcaemia [Unknown]
  - Blood calcium increased [Unknown]
  - Bladder dilatation [Recovered/Resolved]
  - Urinary tract infection [Unknown]
  - Cataract [Unknown]
  - Gastrooesophageal reflux disease [Unknown]
  - Drug ineffective [Unknown]
  - Arthralgia [Recovering/Resolving]
  - Abdominal discomfort [Recovered/Resolved]
